FAERS Safety Report 8020991-X (Version None)
Quarter: 2011Q4

REPORT INFORMATION
  Report Type: 
  Country: None (occurrence: None)
  Receive Date: 20111230
  Receipt Date: 20111230
  Transmission Date: 20120403
  Serious: Yes (Other)
  Sender: FDA-Public Use
  Company Number: None

PATIENT
  Sex: Female
  Weight: 36.2878 kg

DRUGS (3)
  1. ADVAIR DISKUS 100/50 [Concomitant]
  2. HIZENTRA [Suspect]
     Indication: HYPOGAMMAGLOBULINAEMIA
     Dosage: 5 GM WEEK (DIVIDED DOSE)
     Dates: start: 20111227
  3. HIZENTRA [Suspect]
     Indication: HYPOGAMMAGLOBULINAEMIA
     Dosage: 5 GM WEEK (DIVIDED DOSE)
     Dates: start: 20111222

REACTIONS (1)
  - URTICARIA [None]
